FAERS Safety Report 8456218-4 (Version None)
Quarter: 2012Q2

REPORT INFORMATION
  Report Type: 
  Country: None (occurrence: None)
  Receive Date: 20120621
  Receipt Date: 20120614
  Transmission Date: 20120825
  Serious: Yes (Death, Life-Threatening, Hospitalization)
  Sender: FDA-Public Use
  Company Number: FR-UCBSA-059667

PATIENT
  Age: 9 Day
  Sex: Male
  Weight: 3.145 kg

DRUGS (9)
  1. KEPPRA [Suspect]
     Dosage: DOSE:30 MG DAILY
     Dates: start: 20120317, end: 20120401
  2. CLONAZEPAM [Suspect]
     Indication: STATUS EPILEPTICUS
     Dates: start: 20120316, end: 20120101
  3. SUFENTANIL CITRATE [Suspect]
     Indication: ANAESTHESIA
     Dosage: DAILY DOSE:0.2 GAMMA/L
     Dates: start: 20120316, end: 20120101
  4. PHENOBARBITAL TAB [Suspect]
     Indication: STATUS EPILEPTICUS
     Dosage: DAILY DOSE:20 MG/KG , 10 MG/KG
     Dates: start: 20120316, end: 20120101
  5. MIDAZOLAM HCL [Suspect]
     Indication: ANAESTHESIA
     Dosage: DAILY DOSE:30 GAMMA/KG/HOUR
     Dates: start: 20120316, end: 20120101
  6. KEPPRA [Suspect]
     Indication: STATUS EPILEPTICUS
     Dosage: DOSE: 60 MG DAILY
     Dates: start: 20120401
  7. FOSPHENYTOIN SODIUM [Suspect]
     Indication: STATUS EPILEPTICUS
     Dosage: DAILY DOSE:5 MG/KG
     Dates: start: 20120317
  8. VITAMIN B6 AGUETTANT [Concomitant]
     Dosage: UNKNOWN DOSE
     Dates: start: 20120316, end: 20120101
  9. FOSPHENYTOIN SODIUM [Suspect]
     Dosage: DAILY DOSE:15 MG/KG, 75 MG/ML
     Dates: start: 20120316, end: 20120317

REACTIONS (4)
  - LARGE INTESTINE PERFORATION [None]
  - ENTEROCOLITIS [None]
  - OVERDOSE [None]
  - INTESTINAL ISCHAEMIA [None]
